FAERS Safety Report 9362935 (Version 1)
Quarter: 2013Q2

REPORT INFORMATION
  Report Type: Spontaneous
  Country: US (occurrence: None)
  Receive Date: 20130619
  Receipt Date: 20130619
  Transmission Date: 20140414
  Serious: Yes (Death, Hospitalization)
  Sender: FDA-Public Use
  Company Number: 2013-238

PATIENT
  Age: 72 Year
  Sex: Male

DRUGS (10)
  1. CLOZAPINE [Suspect]
     Route: 048
     Dates: start: 20130516, end: 20130602
  2. VITAMIN B2 [Concomitant]
  3. FLOMAX (TAMSULOSIN HYDROCHLORIDE) [Concomitant]
  4. SPIRONOLACTONE (SPIRONOLACTONE) [Concomitant]
  5. PROTONIX [Concomitant]
  6. LISINOPRIL (LISINOPRIL) [Concomitant]
  7. LEVAQUIN (LEVOFLOXACIN) [Concomitant]
  8. PROSCAR [Concomitant]
  9. LOVENOX (ENOXAPARIN SODIUM) [Concomitant]
  10. SINEMET [Concomitant]

REACTIONS (3)
  - Pulmonary embolism [None]
  - Infection [None]
  - Malaise [None]
